FAERS Safety Report 11529575 (Version 1)
Quarter: 2015Q3

REPORT INFORMATION
  Report Type: Spontaneous
  Country: FR (occurrence: FR)
  Receive Date: 20150921
  Receipt Date: 20150921
  Transmission Date: 20151125
  Serious: Yes (Hospitalization)
  Sender: FDA-Public Use
  Company Number: FR-BIOGENIDEC-2015BI127269

PATIENT
  Age: 44 Year
  Sex: Male

DRUGS (1)
  1. TECFIDERA [Suspect]
     Active Substance: DIMETHYL FUMARATE
     Indication: RELAPSING-REMITTING MULTIPLE SCLEROSIS
     Route: 048
     Dates: start: 201411

REACTIONS (4)
  - Nervous system disorder [Unknown]
  - Bacterial infection [Not Recovered/Not Resolved]
  - Multiple sclerosis relapse [Unknown]
  - Infected bite [Unknown]

NARRATIVE: CASE EVENT DATE: 201507
